FAERS Safety Report 14507465 (Version 1)
Quarter: 2018Q1

REPORT INFORMATION
  Report Type: Spontaneous
  Country: US (occurrence: US)
  Receive Date: 20180208
  Receipt Date: 20180208
  Transmission Date: 20180509
  Serious: No
  Sender: FDA-Public Use
  Company Number: US-PURDUE-USA-2017-0141320

PATIENT
  Age: 76 Year
  Sex: Female

DRUGS (1)
  1. BUTRANS [Suspect]
     Active Substance: BUPRENORPHINE
     Indication: BACK PAIN
     Dosage: 7.5 MCG/HR, WEEKLY
     Route: 062
     Dates: start: 20170921

REACTIONS (5)
  - Drug effect decreased [Recovered/Resolved]
  - Product administered at inappropriate site [Unknown]
  - Hyperhidrosis [Not Recovered/Not Resolved]
  - Therapeutic response unexpected [Unknown]
  - Inappropriate schedule of drug administration [Unknown]

NARRATIVE: CASE EVENT DATE: 20170921
